FAERS Safety Report 13525734 (Version 9)
Quarter: 2020Q3

REPORT INFORMATION
  Report Type: Report from Study
  Country: CA (occurrence: CA)
  Receive Date: 20170509
  Receipt Date: 20200701
  Transmission Date: 20201102
  Serious: Yes (Hospitalization, Other)
  Sender: FDA-Public Use
  Company Number: CA-BRISTOL-MYERS SQUIBB COMPANY-BMS-2017-038842

PATIENT
  Age: 73 Year
  Sex: Female

DRUGS (1)
  1. ABATACEPT [Suspect]
     Active Substance: ABATACEPT
     Indication: RHEUMATOID ARTHRITIS
     Dosage: 750 MILLIGRAM, Q4WK
     Route: 042
     Dates: start: 20081110

REACTIONS (14)
  - Malaise [Unknown]
  - Tremor [Unknown]
  - Thrombosis [Unknown]
  - Hypoaesthesia [Unknown]
  - Gastric ulcer [Recovering/Resolving]
  - Infection [Recovering/Resolving]
  - Lung neoplasm malignant [Unknown]
  - Blood pressure increased [Unknown]
  - Treatment noncompliance [Unknown]
  - Dyspnoea [Unknown]
  - Peripheral swelling [Unknown]
  - Haemoptysis [Unknown]
  - Palpitations [Unknown]
  - Weight decreased [Unknown]

NARRATIVE: CASE EVENT DATE: 20170403
